FAERS Safety Report 16302045 (Version 1)
Quarter: 2019Q2

REPORT INFORMATION
  Report Type: Other
  Country: DE (occurrence: DE)
  Receive Date: 20190512
  Receipt Date: 20190512
  Transmission Date: 20190711
  Serious: Yes (Hospitalization, Other)
  Sender: FDA-Public Use
  Company Number: DE-CELLTRION INC.-2018DE018129

PATIENT

DRUGS (12)
  1. CYCLOPHOSPHAMIDE. [Suspect]
     Active Substance: CYCLOPHOSPHAMIDE
     Indication: B-CELL LYMPHOMA
     Dosage: 1282 MILLIGRAM, CYCLICAL (CYCLE 4) 1 X PER CYCLE)
     Route: 042
     Dates: start: 20160817
  2. CYCLOPHOSPHAMIDE. [Suspect]
     Active Substance: CYCLOPHOSPHAMIDE
     Dosage: 1240 MG, QD (1240 MG,1 IN 1 D)
     Route: 042
     Dates: start: 20180118, end: 20180118
  3. PEGFILGRASTIM [Suspect]
     Active Substance: PEGFILGRASTIM
     Indication: B-CELL LYMPHOMA
     Dosage: 6 MILLIGRAM, CYCLICAL
     Route: 058
     Dates: start: 20160819
  4. BISOPROLOL [Concomitant]
     Active Substance: BISOPROLOL
     Indication: ARRHYTHMIA
     Dosage: UNK
     Dates: start: 20161002
  5. PREDNISONE. [Suspect]
     Active Substance: PREDNISONE
     Indication: B-CELL LYMPHOMA
     Dosage: 100 MG, 1XFOR 5 DAYS
     Route: 048
     Dates: start: 20180117, end: 20180121
  6. DOXORUBICIN [Suspect]
     Active Substance: DOXORUBICIN
     Dosage: 82 MG, QD (82 MG,1 IN 1 D)
     Route: 042
     Dates: start: 20180118, end: 20180118
  7. FILGRASTIM [Suspect]
     Active Substance: FILGRASTIM
     Indication: B-CELL LYMPHOMA
     Dosage: 6 MG, QD (6 MG,1 IN 1 D)
     Route: 058
     Dates: start: 20180120, end: 20180120
  8. DOXORUBICIN [Suspect]
     Active Substance: DOXORUBICIN
     Indication: B-CELL LYMPHOMA
     Dosage: 85 MILLIGRAM, CYCLICAL
     Route: 042
     Dates: start: 20160817
  9. PREDNISOLONE. [Suspect]
     Active Substance: PREDNISOLONE
     Indication: B-CELL LYMPHOMA
     Dosage: 100 MILLIGRAM, CYCLICAL DAY 1-6
     Route: 048
     Dates: start: 20160816
  10. RITUXIMAB (UNKNOWN) [Suspect]
     Active Substance: RITUXIMAB
     Indication: B-CELL LYMPHOMA
     Dosage: 641 MILLIGRAM, CYCLICAL
     Route: 042
     Dates: start: 20160816
  11. RITUXIMAB (UNKNOWN) [Suspect]
     Active Substance: RITUXIMAB
     Dosage: 620 MG, QD (620 MG,1 IN 1 D)
     Route: 042
     Dates: start: 20180131, end: 20180131
  12. VINCRISTINE [Suspect]
     Active Substance: VINCRISTINE
     Indication: B-CELL LYMPHOMA
     Dosage: 334 MILLIGRAM, CYCLICAL
     Route: 042
     Dates: start: 20160817

REACTIONS (3)
  - Pulmonary embolism [Recovered/Resolved]
  - Chest discomfort [Unknown]
  - Device dislocation [Unknown]

NARRATIVE: CASE EVENT DATE: 20161002
